FAERS Safety Report 5840835-1 (Version None)
Quarter: 2008Q3

REPORT INFORMATION
  Report Type: 
  Country: None (occurrence: None)
  Receive Date: 20080811
  Receipt Date: 20080724
  Transmission Date: 20090109
  Serious: No
  Sender: FDA-Public Use
  Company Number: US-BOEHRINGER INGELHEIM GMBH, GERMANY-2008-BP-11789BP

PATIENT
  Age: 80 Year
  Sex: Female

DRUGS (3)
  1. SPIRIVA [Suspect]
     Indication: OXYGEN SATURATION DECREASED
     Route: 055
     Dates: start: 20080515, end: 20080715
  2. HYDROCHLOROTHIAZIDE [Concomitant]
     Indication: SWELLING
     Route: 048
  3. METFORMIN HCL [Concomitant]
     Indication: HYPERGLYCAEMIA
     Route: 048

REACTIONS (2)
  - JOINT SWELLING [None]
  - OEDEMA PERIPHERAL [None]
